FAERS Safety Report 7706756-4 (Version None)
Quarter: 2011Q3

REPORT INFORMATION
  Report Type: 
  Country: None (occurrence: None)
  Receive Date: 20110824
  Receipt Date: 20110818
  Transmission Date: 20111222
  Serious: Yes (Other)
  Sender: FDA-Public Use
  Company Number: US-PFIZER INC-2007036446

PATIENT

DRUGS (3)
  1. NEURONTIN [Suspect]
     Indication: PAIN IN EXTREMITY
  2. NEURONTIN [Suspect]
     Indication: BACK PAIN
     Dosage: 1200 MG, UNK
  3. NEURONTIN [Suspect]
     Indication: NERVE INJURY
     Dates: start: 20020701

REACTIONS (3)
  - SUICIDAL IDEATION [None]
  - RENAL DISORDER [None]
  - AMNESIA [None]
